FAERS Safety Report 6277945-3 (Version None)
Quarter: 2009Q3

REPORT INFORMATION
  Report Type: 
  Country: None (occurrence: None)
  Receive Date: 20090720
  Receipt Date: 20090709
  Transmission Date: 20100115
  Serious: Yes (Hospitalization)
  Sender: FDA-Public Use
  Company Number: ADR6442009 (ARROW LOG NO: 2007AG0383)

PATIENT
  Age: 61 Year
  Sex: Female

DRUGS (4)
  1. CITALOPRAM HYDROBROMIDE [Suspect]
     Indication: DEPRESSION
     Dosage: 10 MG/DAY- 30MG/DAY, ORAL
     Route: 048
  2. PARAIGIN FORTE [Concomitant]
  3. ACTIVELLE [Concomitant]
  4. ACETAMINOPHEN [Concomitant]

REACTIONS (3)
  - ABDOMINAL PAIN LOWER [None]
  - LIVER DISORDER [None]
  - VOMITING [None]
